FAERS Safety Report 10447028 (Version 2)
Quarter: 2014Q3

REPORT INFORMATION
  Report Type: Spontaneous
  Country: US (occurrence: US)
  Receive Date: 20140911
  Receipt Date: 20140911
  Transmission Date: 20150326
  Serious: No
  Sender: FDA-Public Use
  Company Number: US-PFIZER INC-2014248625

PATIENT
  Sex: Female

DRUGS (1)
  1. LYRICA [Suspect]
     Active Substance: PREGABALIN
     Dosage: UNK, 2XDAY (ONE CAPSULE IN THE MORNING AND ONE CAPSULE AT NIGHT)

REACTIONS (3)
  - Swelling [Recovering/Resolving]
  - Depression [Recovering/Resolving]
  - Joint swelling [Recovering/Resolving]
